FAERS Safety Report 19372682 (Version 1)
Quarter: 2021Q2

REPORT INFORMATION
  Report Type: Spontaneous
  Country: US (occurrence: US)
  Receive Date: 20210603
  Receipt Date: 20210603
  Transmission Date: 20210717
  Serious: Yes (Life-Threatening, Disabling, Other)
  Sender: FDA-Public Use
  Company Number: None

PATIENT
  Age: 78 Year
  Sex: Male
  Weight: 83.25 kg

DRUGS (19)
  1. ANDROGEL [Concomitant]
     Active Substance: TESTOSTERONE
  2. ALBUTEROL INHALER [Concomitant]
     Active Substance: ALBUTEROL
  3. PEPCID [Concomitant]
     Active Substance: FAMOTIDINE
  4. ZYRTEC [Concomitant]
     Active Substance: CETIRIZINE HYDROCHLORIDE
  5. VITAMIN E [Concomitant]
     Active Substance: .ALPHA.-TOCOPHEROL
  6. FEXOFENADINE [Concomitant]
     Active Substance: FEXOFENADINE HYDROCHLORIDE
  7. FLONASE [Concomitant]
     Active Substance: FLUTICASONE PROPIONATE
  8. MUCINEX [Concomitant]
     Active Substance: GUAIFENESIN
  9. BISOPROLOL [Concomitant]
     Active Substance: BISOPROLOL
  10. ASPIRIN. [Concomitant]
     Active Substance: ASPIRIN
  11. VITAMIN C [Concomitant]
     Active Substance: ASCORBIC ACID
  12. HYDRALAZINE [Concomitant]
     Active Substance: HYDRALAZINE HYDROCHLORIDE
  13. NEURONTIN [Concomitant]
     Active Substance: GABAPENTIN
  14. PERCOCET [Concomitant]
     Active Substance: ACETAMINOPHEN\OXYCODONE HYDROCHLORIDE
  15. ACTEMRA [Suspect]
     Active Substance: TOCILIZUMAB
     Indication: GIANT CELL ARTERITIS
     Dates: start: 20210225, end: 20210225
  16. JANUVIA [Concomitant]
     Active Substance: SITAGLIPTIN PHOSPHATE
  17. GLIMEPIRIDE. [Concomitant]
     Active Substance: GLIMEPIRIDE
  18. PREDNISONE. [Concomitant]
     Active Substance: PREDNISONE
  19. MAGNESIUM [Concomitant]
     Active Substance: MAGNESIUM

REACTIONS (1)
  - Metastases to lung [None]

NARRATIVE: CASE EVENT DATE: 20210319
